FAERS Safety Report 8156153-5 (Version None)
Quarter: 2012Q1

REPORT INFORMATION
  Report Type: 
  Country: None (occurrence: None)
  Receive Date: 20120222
  Receipt Date: 20120214
  Transmission Date: 20120608
  Serious: Yes (Other)
  Sender: FDA-Public Use
  Company Number: PT-PFIZER INC-2011225426

PATIENT
  Age: 64 Year
  Sex: Female

DRUGS (1)
  1. SUTENT [Suspect]
     Dosage: 25 MG, 1X/DAY
     Dates: start: 20101201, end: 20110301

REACTIONS (4)
  - HYPERTENSION [None]
  - HYPERTHYROIDISM [None]
  - GENERALISED OEDEMA [None]
  - PANCYTOPENIA [None]
